FAERS Safety Report 5798408-5 (Version None)
Quarter: 2008Q3

REPORT INFORMATION
  Report Type: 
  Country: None (occurrence: None)
  Receive Date: 20080702
  Receipt Date: 20080620
  Transmission Date: 20090109
  Serious: Yes (Hospitalization)
  Sender: FDA-Public Use
  Company Number: CH-ROCHE-572115

PATIENT
  Age: 46 Year
  Sex: Female

DRUGS (11)
  1. CLONAZEPAM [Suspect]
     Route: 048
     Dates: start: 20080101
  2. ANAFRANIL [Interacting]
     Dosage: FORM: FILM COATED TABLETS.
     Route: 048
     Dates: start: 20080101
  3. ANAFRANIL [Interacting]
     Dosage: DOSE INCREASED.
     Route: 048
  4. TEGRETOL [Interacting]
     Route: 065
     Dates: start: 19950101
  5. DURAGESIC-100 [Interacting]
     Dosage: DOSAGE: 25 MCG/HR EVERY 72 HR, 1 CYCLE.  FORM: MEDICALLY DESIGNED TRANSDERMAL PATCHES.
     Route: 061
     Dates: start: 20080101
  6. DURAGESIC-100 [Interacting]
     Dosage: DOSE INCREASED.
     Route: 061
  7. MORPHINE HCL ELIXIR [Concomitant]
     Dosage: AS NEEDED.
     Dates: start: 20080423
  8. DAFALGAN [Concomitant]
     Dosage: FORM: FILM COATED TABLETS.
     Route: 048
     Dates: start: 20080423
  9. PULMICORT-100 [Concomitant]
     Dosage: ROUTE: RESPIRATORY INHALATION
     Route: 055
     Dates: start: 20080101
  10. DOSPIR [Concomitant]
     Dosage: FORM: LIQUID INHALATIONS
     Route: 055
     Dates: start: 20080101
  11. LORAZEPAM [Concomitant]
     Dates: start: 20080418

REACTIONS (2)
  - DRUG INEFFECTIVE [None]
  - DRUG INTERACTION [None]
